FAERS Safety Report 24630485 (Version 2)
Quarter: 2024Q4

REPORT INFORMATION
  Report Type: Report from Study
  Country: JP (occurrence: JP)
  Receive Date: 20241118
  Receipt Date: 20241122
  Transmission Date: 20250114
  Serious: Yes (Hospitalization)
  Sender: EISAI
  Company Number: JP-Eisai-EC-2024-178858

PATIENT
  Age: 66 Year
  Sex: Male

DRUGS (17)
  1. LENVATINIB MESYLATE [Suspect]
     Active Substance: LENVATINIB MESYLATE
     Indication: Thymic carcinoma
     Route: 048
     Dates: start: 20241029, end: 20241108
  2. CARBOPLATIN [Suspect]
     Active Substance: CARBOPLATIN
     Indication: Thymic carcinoma
     Route: 042
     Dates: start: 20241029
  3. PACLITAXEL [Suspect]
     Active Substance: PACLITAXEL
     Indication: Thymic carcinoma
     Route: 042
     Dates: start: 20241029
  4. PEMBROLIZUMAB [Suspect]
     Active Substance: PEMBROLIZUMAB
     Indication: Thymic carcinoma
     Dates: start: 20241029
  5. PREGABALIN [Concomitant]
     Active Substance: PREGABALIN
  6. ROSUVASTATIN CALCIUM [Concomitant]
     Active Substance: ROSUVASTATIN CALCIUM
  7. TELMISARTAN [Concomitant]
     Active Substance: TELMISARTAN
  8. CANAGLIFLOZIN [Concomitant]
     Active Substance: CANAGLIFLOZIN
  9. MITIGLINIDE CALCIUM HYDRATE [Concomitant]
     Active Substance: MITIGLINIDE CALCIUM HYDRATE
  10. INSULIN ASPART [Concomitant]
     Active Substance: INSULIN ASPART
  11. INSULIN DEGLUDEC [Concomitant]
     Active Substance: INSULIN DEGLUDEC
  12. METHYLCOBALAMIN [Concomitant]
     Active Substance: METHYLCOBALAMIN
  13. TRIBENOSIDE [Concomitant]
     Active Substance: TRIBENOSIDE
  14. LIDOCAINE [Concomitant]
     Active Substance: LIDOCAINE
  15. BROMELAINS [Concomitant]
     Active Substance: BROMELAINS
  16. TOCOPHEROL ACETATE [Concomitant]
     Active Substance: .ALPHA.-TOCOPHEROL ACETATE
  17. VOGLIBOSE [Concomitant]
     Active Substance: VOGLIBOSE

REACTIONS (1)
  - Febrile neutropenia [Not Recovered/Not Resolved]

NARRATIVE: CASE EVENT DATE: 20241107
